FAERS Safety Report 7905774-0 (Version None)
Quarter: 2011Q4

REPORT INFORMATION
  Report Type: 
  Country: None (occurrence: None)
  Receive Date: 20111108
  Receipt Date: 20111019
  Transmission Date: 20120403
  Serious: Yes (Hospitalization)
  Sender: FDA-Public Use
  Company Number: JP-20110028

PATIENT
  Age: 79 Year
  Sex: Male

DRUGS (4)
  1. GELPART (GELATIN) [Suspect]
     Indication: THERAPEUTIC EMBOLISATION
     Dosage: 1 MG (1 MG, 1 IN 1 D), INTRA-ARTERIAL
     Route: 013
     Dates: start: 20110414, end: 20110414
  2. (LIPIODOL ULTRA FLUIDE) (ETHIODIZED OIL) [Suspect]
     Indication: THERAPEUTIC EMBOLISATION
     Dosage: 10 ML (10 ML, 1 IN 1 D), INTRA-ARTERIAL
     Route: 013
     Dates: start: 20110414, end: 20110414
  3. EPIRUBICIN HYDROCHLORIDE [Suspect]
     Indication: THERAPEUTIC EMBOLISATION
     Dosage: 50 MG (50 MG, 1 IN 1 D), INTRA-ARTERIAL
     Route: 013
     Dates: start: 20110414, end: 20110414
  4. (VOLTAREN SR) (DICLOFENAC) (DICLOFENAC) [Concomitant]

REACTIONS (4)
  - TUMOUR LYSIS SYNDROME [None]
  - DIALYSIS [None]
  - OFF LABEL USE [None]
  - RENAL FAILURE [None]
